FAERS Safety Report 12893184 (Version 2)
Quarter: 2016Q4

REPORT INFORMATION
  Report Type: Spontaneous
  Country: PE (occurrence: PE)
  Receive Date: 20161028
  Receipt Date: 20161115
  Transmission Date: 20170207
  Serious: Yes (Hospitalization)
  Sender: FDA-Public Use
  Company Number: PE-009507513-1512PER000620

PATIENT
  Age: 5 Year
  Sex: Male

DRUGS (4)
  1. NASONEX [Suspect]
     Active Substance: MOMETASONE FUROATE
     Dosage: 1 PUFF IN EACH NOSTRIL (2 DF), AT NIGHT
     Route: 045
     Dates: start: 201609, end: 201610
  2. NASONEX [Suspect]
     Active Substance: MOMETASONE FUROATE
     Indication: RHINORRHOEA
     Dosage: UNK, USED BY SEASONS
     Route: 045
     Dates: start: 2014
  3. NASONEX [Suspect]
     Active Substance: MOMETASONE FUROATE
     Dosage: 1 PUFF IN EACH NOSTRIL (2 DF), AT NIGHT
     Route: 045
     Dates: start: 201610, end: 20161102
  4. NASONEX [Suspect]
     Active Substance: MOMETASONE FUROATE
     Indication: RHINITIS ALLERGIC
     Dosage: 2 PUFFS (DF) IN EACH NOSTRIL, TWO TIMES A DAY (BID; IN THE MORNINGS AND AT NIGHT)
     Route: 045
     Dates: start: 2014, end: 201609

REACTIONS (11)
  - Irritability [Unknown]
  - Rhinorrhoea [Not Recovered/Not Resolved]
  - Inappropriate schedule of drug administration [Unknown]
  - Hypersensitivity [Unknown]
  - Product use issue [Unknown]
  - Rhinitis [Recovering/Resolving]
  - Influenza [Recovered/Resolved]
  - Epistaxis [Recovered/Resolved]
  - Otorrhoea [Unknown]
  - Nasal discomfort [Unknown]
  - Overdose [Unknown]

NARRATIVE: CASE EVENT DATE: 20140101
